FAERS Safety Report 6004030-8 (Version None)
Quarter: 2008Q4

REPORT INFORMATION
  Report Type: 
  Country: None (occurrence: None)
  Receive Date: 20081216
  Receipt Date: 20081212
  Transmission Date: 20090506
  Serious: Yes (Hospitalization)
  Sender: FDA-Public Use
  Company Number: A0760210A

PATIENT
  Age: 53 Year
  Sex: Female

DRUGS (2)
  1. ADVAIR DISKUS 250/50 [Suspect]
     Indication: ASTHMA
     Dosage: 1PUFF TWICE PER DAY
     Route: 055
     Dates: start: 20040101, end: 20080901
  2. SINGULAIR [Concomitant]

REACTIONS (7)
  - ASTHMA [None]
  - DISCOMFORT [None]
  - HAEMOPTYSIS [None]
  - RESPIRATORY ARREST [None]
  - RESPIRATORY DISORDER [None]
  - RESPIRATORY TRACT IRRITATION [None]
  - WEIGHT DECREASED [None]
